FAERS Safety Report 5694654-X (Version None)
Quarter: 2008Q2

REPORT INFORMATION
  Report Type: 
  Country: None (occurrence: None)
  Receive Date: 20080404
  Receipt Date: 20080328
  Transmission Date: 20081010
  Serious: Yes (Other)
  Sender: FDA-Public Use
  Company Number: A0718112A

PATIENT
  Age: 34 Year
  Sex: Male

DRUGS (2)
  1. WELLBUTRIN XL [Suspect]
     Indication: DEPRESSION
     Dosage: 300MG PER DAY
     Route: 048
     Dates: start: 20071101
  2. NO CONCURRENT MEDICATION [Concomitant]

REACTIONS (3)
  - BLOOD OSMOLARITY DECREASED [None]
  - DEHYDRATION [None]
  - DIABETES INSIPIDUS [None]
